FAERS Safety Report 14309367 (Version 1)
Quarter: 2017Q4

REPORT INFORMATION
  Report Type: Spontaneous
  Country: JP (occurrence: JP)
  Receive Date: 20171220
  Receipt Date: 20171220
  Transmission Date: 20180321
  Serious: Yes (Other)
  Sender: FDA-Public Use
  Company Number: JP-ELI_LILLY_AND_COMPANY-JP201712006639

PATIENT
  Age: 63 Year
  Sex: Female

DRUGS (1)
  1. CYRAMZA [Suspect]
     Active Substance: RAMUCIRUMAB
     Indication: ADENOSQUAMOUS CELL CARCINOMA
     Dosage: UNK
     Route: 041

REACTIONS (3)
  - Lip injury [Unknown]
  - Impaired healing [Unknown]
  - Syncope [Unknown]
